FAERS Safety Report 14957384 (Version 1)
Quarter: 2018Q2

REPORT INFORMATION
  Report Type: Spontaneous
  Country: US (occurrence: US)
  Receive Date: 20180531
  Receipt Date: 20180531
  Transmission Date: 20180711
  Serious: Yes (Hospitalization, Other)
  Sender: FDA-Public Use
  Company Number: US-BIOCOMPATIBLES UK LTD-2018BTG01676

PATIENT
  Sex: Male

DRUGS (4)
  1. FENTANYL. [Suspect]
     Active Substance: FENTANYL
     Indication: PRODUCT USED FOR UNKNOWN INDICATION
     Dosage: UNK
     Dates: start: 20180516
  2. CROFAB [Suspect]
     Active Substance: CROTALIDAE POLYVALENT IMMUNE FAB (OVINE)
     Indication: SNAKE BITE
     Dosage: 6 VIALS, SINGLE
     Dates: start: 20180516
  3. XYLEPAM [Suspect]
     Active Substance: ALPRAZOLAM
     Indication: PRODUCT USED FOR UNKNOWN INDICATION
     Dosage: UNK
     Dates: start: 20180516
  4. CROFAB [Suspect]
     Active Substance: CROTALIDAE POLYVALENT IMMUNE FAB (OVINE)
     Dosage: 6 VIALS, THROUGHOUT THE NIGHT
     Dates: start: 20180516

REACTIONS (4)
  - Agitation [None]
  - Sedation complication [Unknown]
  - Extra dose administered [None]
  - Mechanical ventilation [Unknown]

NARRATIVE: CASE EVENT DATE: 20180517
